FAERS Safety Report 4325383-2 (Version None)
Quarter: 2004Q1

REPORT INFORMATION
  Report Type: 
  Country: None (occurrence: None)
  Receive Date: 20040324
  Receipt Date: 20040312
  Transmission Date: 20041129
  Serious: Yes (Death, Hospitalization)
  Sender: FDA-Public Use
  Company Number: US-JNJFOC-20040303639

PATIENT
  Age: 69 Year
  Sex: Male

DRUGS (16)
  1. INFLIXIMAB (INFLIXIMAB, RECOMBINANT) LYOPHILIZED POWDER [Suspect]
     Indication: RHEUMATOID ARTHRITIS
     Dosage: INTRAVENOUS
     Route: 042
     Dates: start: 20030227, end: 20030227
  2. INFLIXIMAB (INFLIXIMAB, RECOMBINANT) LYOPHILIZED POWDER [Suspect]
     Indication: RHEUMATOID ARTHRITIS
     Dosage: INTRAVENOUS
     Route: 042
     Dates: start: 20010102
  3. FOLIC ACID [Concomitant]
  4. METHOTREXATE [Concomitant]
  5. PREDNISONE [Concomitant]
  6. LANTUS [Concomitant]
  7. HUMULIN (NOVOLIN 20/80) [Concomitant]
  8. AMARYL [Concomitant]
  9. ALTACE [Concomitant]
  10. K-DUR 10 [Concomitant]
  11. LIPITOR [Concomitant]
  12. ACIPHEX [Concomitant]
  13. FOSAMAX [Concomitant]
  14. ZOLOFT [Concomitant]
  15. NIASPAN [Concomitant]
  16. LORTAB [Concomitant]

REACTIONS (1)
  - DEATH [None]
